FAERS Safety Report 8675919 (Version 3)
Quarter: 2012Q4

REPORT INFORMATION
  Report Type: 
  Country: DK (occurrence: DK)
  Receive Date: 20120720
  Receipt Date: 20121023
  Transmission Date: 20130627
  Serious: Yes (Other)
  Sender: FDA-Public Use
  Company Number: PHHY2012DK061692

PATIENT
  Age: 52 Year
  Sex: Male

DRUGS (2)
  1. GILENYA [Suspect]
     Indication: MULTIPLE SCLEROSIS
     Dosage: 0.5 mg
     Route: 048
     Dates: start: 20111206
  2. GILENYA [Suspect]
     Dosage: STYRKE: 0,5 mg
     Route: 048
     Dates: start: 20111206

REACTIONS (1)
  - Detachment of macular retinal pigment epithelium [Not Recovered/Not Resolved]
